FAERS Safety Report 6094393-X (Version None)
Quarter: 2009Q1

REPORT INFORMATION
  Report Type: 
  Country: None (occurrence: None)
  Receive Date: 20090224
  Receipt Date: 20090216
  Transmission Date: 20090719
  Serious: Yes (Death, Other)
  Sender: FDA-Public Use
  Company Number: 2009SP003487

PATIENT
  Age: 65 Year
  Sex: Male
  Weight: 85 kg

DRUGS (7)
  1. INTEGRILIN [Suspect]
     Dates: start: 20080318
  2. NOVO SEVEN (EPTACOG ALFA (ACTIVATED)) [Suspect]
     Indication: HAEMORRHAGE
     Dosage: 8.4 MG; ONCE; IV
     Route: 042
     Dates: start: 20080319
  3. TRASYLOL [Suspect]
     Indication: HAEMORRHAGE
  4. ALBUMEX 20 [Concomitant]
  5. HEPARIN SODIUM INJECTION [Concomitant]
  6. LIGNOCAINE [Concomitant]
  7. PROTAMINE SULFATE [Concomitant]

REACTIONS (8)
  - ACTIVATED PARTIAL THROMBOPLASTIN TIME PROLONGED [None]
  - BLOOD FIBRINOGEN INCREASED [None]
  - CEREBROVASCULAR ACCIDENT [None]
  - HAEMOGLOBIN DECREASED [None]
  - HEPATIC FAILURE [None]
  - INTERNATIONAL NORMALISED RATIO DECREASED [None]
  - MULTI-ORGAN FAILURE [None]
  - RENAL FAILURE [None]
